FAERS Safety Report 9302689 (Version 4)
Quarter: 2014Q4

REPORT INFORMATION
  Report Type: Report from Study
  Country: JP (occurrence: JP)
  Receive Date: 20130522
  Receipt Date: 20141201
  Transmission Date: 20150529
  Serious: Yes (Other)
  Sender: FDA-Public Use
  Company Number: PHHY2013JP033104

PATIENT
  Age: 49 Year
  Sex: Male

DRUGS (22)
  1. CLOZARIL [Interacting]
     Active Substance: CLOZAPINE
     Dosage: 50 MG, QD
     Route: 048
     Dates: start: 20120715, end: 20120717
  2. TEGRETOL [Interacting]
     Active Substance: CARBAMAZEPINE
     Dosage: 400 MG, QD
     Route: 048
     Dates: start: 20121103, end: 20121113
  3. CLOZARIL [Interacting]
     Active Substance: CLOZAPINE
     Dosage: 200 MG, QD
     Route: 048
     Dates: start: 20121017, end: 20121113
  4. CLOZARIL [Suspect]
     Active Substance: CLOZAPINE
     Indication: SCHIZOPHRENIA, PARANOID TYPE
     Dosage: 12.5 MG, QD
     Route: 048
     Dates: start: 20120711, end: 20120711
  5. CLOZARIL [Interacting]
     Active Substance: CLOZAPINE
     Dosage: 175 MG, QD
     Route: 048
     Dates: start: 20120728, end: 20120730
  6. CLOZARIL [Interacting]
     Active Substance: CLOZAPINE
     Dosage: 150 MG, QD
     Route: 048
     Dates: start: 20120912, end: 20121002
  7. CLOZARIL [Interacting]
     Active Substance: CLOZAPINE
     Dosage: 25 MG, QD
     Route: 048
     Dates: start: 20120712, end: 20120714
  8. CLOZARIL [Interacting]
     Active Substance: CLOZAPINE
     Dosage: 100 MG, QD
     Route: 048
     Dates: start: 20120720, end: 20120721
  9. CLOZARIL [Interacting]
     Active Substance: CLOZAPINE
     Dosage: 200 MG, QD
     Route: 048
     Dates: start: 20120731, end: 20120904
  10. CLOZARIL [Interacting]
     Active Substance: CLOZAPINE
     Dosage: 225 MG, QD
     Route: 048
     Dates: start: 20121114, end: 20121218
  11. CLOZARIL [Interacting]
     Active Substance: CLOZAPINE
     Dosage: 275 MG, QD
     Route: 048
     Dates: start: 20130213
  12. CLOZARIL [Interacting]
     Active Substance: CLOZAPINE
     Dosage: 175 MG, QD
     Route: 048
     Dates: start: 20121003, end: 20121016
  13. CLOZARIL [Interacting]
     Active Substance: CLOZAPINE
     Dosage: 250 MG, QD
     Route: 048
     Dates: start: 20121219, end: 20130212
  14. TEGRETOL [Interacting]
     Active Substance: CARBAMAZEPINE
     Dosage: 800 MG, QD
     Route: 048
     Dates: start: 20121114
  15. CLOZARIL [Interacting]
     Active Substance: CLOZAPINE
     Dosage: 125 MG, QD
     Route: 048
     Dates: start: 20120722, end: 20120724
  16. CLOZARIL [Interacting]
     Active Substance: CLOZAPINE
     Dosage: 150 MG, QD
     Route: 048
     Dates: start: 20120725, end: 20120727
  17. LEUCON [Concomitant]
     Indication: PROPHYLAXIS
     Dosage: 30 MG, UNK
     Route: 048
     Dates: start: 20120711
  18. CLOZARIL [Interacting]
     Active Substance: CLOZAPINE
     Dosage: 75 MG, QD
     Route: 048
     Dates: start: 20120718, end: 20120719
  19. CLOZARIL [Interacting]
     Active Substance: CLOZAPINE
     Dosage: 175 MG, QD
     Route: 048
     Dates: start: 20120905, end: 20120911
  20. TEGRETOL [Interacting]
     Active Substance: CARBAMAZEPINE
     Indication: SCHIZOPHRENIA, PARANOID TYPE
     Dosage: 800 MG, QD
     Route: 048
     Dates: start: 20120711, end: 20121102
  21. LYZYME [Concomitant]
     Indication: SCHIZOPHRENIA, PARANOID TYPE
     Dosage: 800 MG, UNK
     Route: 048
     Dates: start: 20120711
  22. LEUCON [Concomitant]
     Dosage: 60 MG, UNK
     Route: 048

REACTIONS (7)
  - Blood count abnormal [Recovered/Resolved]
  - Delusion [Recovering/Resolving]
  - Sedation [Recovered/Resolved]
  - Hallucination [Recovering/Resolving]
  - Drug effect incomplete [Unknown]
  - Drug interaction [Unknown]
  - Constipation [Recovering/Resolving]

NARRATIVE: CASE EVENT DATE: 20120809
